FAERS Safety Report 12238331 (Version 3)
Quarter: 2016Q3

REPORT INFORMATION
  Report Type: Spontaneous
  Country: JP (occurrence: JP)
  Receive Date: 20160405
  Receipt Date: 20160715
  Transmission Date: 20161109
  Serious: Yes (Hospitalization, Other)
  Sender: FDA-Public Use
  Company Number: JP-009507513-1603JPN013392

PATIENT
  Age: 66 Year
  Sex: Female
  Weight: 48 kg

DRUGS (7)
  1. RIVOTRIL [Suspect]
     Active Substance: CLONAZEPAM
     Dosage: 0.5 MG, BID
     Route: 048
     Dates: start: 20160304
  2. SEROQUEL [Concomitant]
     Active Substance: QUETIAPINE FUMARATE
     Indication: DELUSION
     Dosage: 25 MG, QD
     Route: 048
     Dates: start: 20160204, end: 20160226
  3. BELSOMRA [Suspect]
     Active Substance: SUVOREXANT
     Indication: INSOMNIA
     Dosage: 15 MG, QD
     Route: 048
     Dates: start: 20160125, end: 20160310
  4. RIVOTRIL [Suspect]
     Active Substance: CLONAZEPAM
     Indication: TREMOR
     Dosage: 0.5 MG, QD
     Route: 048
     Dates: start: 20160213, end: 20160303
  5. PAXIL CR [Concomitant]
     Active Substance: PAROXETINE HYDROCHLORIDE
     Indication: DEPRESSION
     Dosage: 25 MG, QD
     Route: 048
     Dates: start: 20160213
  6. SEDIEL [Concomitant]
     Active Substance: TANDOSPIRONE
     Indication: ANXIETY
     Dosage: 10 MG X 1, 5 MG X 1/DAY (DAILY DOSE UNKNOWN)
     Route: 048
     Dates: start: 20151123
  7. SEROQUEL [Concomitant]
     Active Substance: QUETIAPINE FUMARATE
     Indication: HALLUCINATION

REACTIONS (2)
  - Urinary retention [Recovered/Resolved]
  - Uterine prolapse [Unknown]

NARRATIVE: CASE EVENT DATE: 20160225
